FAERS Safety Report 9242509 (Version 1)
Quarter: 2013Q2

REPORT INFORMATION
  Report Type: Spontaneous
  Country: MX (occurrence: MX)
  Receive Date: 20130419
  Receipt Date: 20130419
  Transmission Date: 20140414
  Serious: Yes (Death, Other)
  Sender: FDA-Public Use
  Company Number: MX-JNJFOC-20130409230

PATIENT
  Sex: 0

DRUGS (12)
  1. DOXORUBICIN HYDROCHLORIDE [Suspect]
     Indication: LYMPHOMA
     Dosage: DAY 1
     Route: 042
  2. DOXORUBICIN HYDROCHLORIDE [Suspect]
     Indication: DIFFUSE LARGE B-CELL LYMPHOMA
     Dosage: DAY 1
     Route: 042
  3. CYCLOPHOSPHAMIDE [Suspect]
     Indication: LYMPHOMA
     Dosage: DAY 1
     Route: 042
  4. CYCLOPHOSPHAMIDE [Suspect]
     Indication: DIFFUSE LARGE B-CELL LYMPHOMA
     Dosage: DAY 1
     Route: 042
  5. VINCRISTINE [Suspect]
     Indication: LYMPHOMA
     Dosage: STANDARD DOSE, DAY 1
     Route: 042
  6. VINCRISTINE [Suspect]
     Indication: DIFFUSE LARGE B-CELL LYMPHOMA
     Dosage: STANDARD DOSE, DAY 1
     Route: 042
  7. PREDNISONE [Suspect]
     Indication: LYMPHOMA
     Dosage: STANDARD DOSE, DAYS 1-5
     Route: 048
  8. PREDNISONE [Suspect]
     Indication: DIFFUSE LARGE B-CELL LYMPHOMA
     Dosage: STANDARD DOSE, DAYS 1-5
     Route: 048
  9. RITUXIMAB [Suspect]
     Indication: LYMPHOMA
     Dosage: DAY 1
     Route: 042
  10. RITUXIMAB [Suspect]
     Indication: DIFFUSE LARGE B-CELL LYMPHOMA
     Dosage: DAY 1
     Route: 042
  11. ANTI-EMETICS [Concomitant]
     Indication: PROPHYLAXIS
     Route: 065
  12. DIPHENHYDRAMINE [Concomitant]
     Indication: PROPHYLAXIS
     Route: 065

REACTIONS (4)
  - Neoplasm progression [Fatal]
  - Granulocytopenia [Unknown]
  - Condition aggravated [Unknown]
  - Pneumonia [Recovered/Resolved]
